FAERS Safety Report 8144935-5 (Version None)
Quarter: 2012Q1

REPORT INFORMATION
  Report Type: 
  Country: None (occurrence: None)
  Receive Date: 20120217
  Receipt Date: 20120208
  Transmission Date: 20120608
  Serious: Yes (Disabling)
  Sender: FDA-Public Use
  Company Number: US-MERCK-1202USA01372

PATIENT
  Age: 54 Year
  Sex: Female
  Weight: 85 kg

DRUGS (5)
  1. LISINOPRIL [Concomitant]
     Route: 065
  2. ZOCOR [Suspect]
     Indication: BLOOD CHOLESTEROL INCREASED
     Route: 048
     Dates: start: 20110119, end: 20110201
  3. MOBIC [Concomitant]
     Route: 065
  4. LIPITOR [Suspect]
     Indication: BLOOD CHOLESTEROL INCREASED
     Route: 048
  5. NEXIUM [Concomitant]
     Route: 065

REACTIONS (2)
  - ABASIA [None]
  - HYPOAESTHESIA [None]
